FAERS Safety Report 6581953-2 (Version None)
Quarter: 2010Q1

REPORT INFORMATION
  Report Type: 
  Country: None (occurrence: None)
  Receive Date: 20100215
  Receipt Date: 20100204
  Transmission Date: 20100710
  Serious: Yes (Other)
  Sender: FDA-Public Use
  Company Number: MX-ELI_LILLY_AND_COMPANY-MX200907000755

PATIENT
  Age: 28 Year
  Sex: Female
  Weight: 55 kg

DRUGS (5)
  1. HUMALOG MIX 75/25 [Suspect]
     Indication: GESTATIONAL DIABETES
     Dosage: 14 IU, EACH MORNING
     Route: 058
     Dates: start: 20090501, end: 20100104
  2. HUMALOG MIX 75/25 [Suspect]
     Dosage: 7 IU, EACH EVENING
     Route: 058
     Dates: start: 20090501, end: 20100104
  3. FOLIC ACID [Concomitant]
     Dosage: UNK, DAILY (1/D)
     Route: 065
     Dates: end: 20090801
  4. IRON [Concomitant]
     Dosage: UNK, UNKNOWN
     Route: 065
  5. MULTI-VITAMINS [Concomitant]
     Dosage: UNK, UNKNOWN
     Route: 065

REACTIONS (2)
  - DRUG EXPOSURE DURING PREGNANCY [None]
  - THROMBOCYTOPENIA [None]
